FAERS Safety Report 6357106-X (Version None)
Quarter: 2009Q3

REPORT INFORMATION
  Report Type: 
  Country: None (occurrence: None)
  Receive Date: 20090910
  Receipt Date: 20090826
  Transmission Date: 20100115
  Serious: Yes (Death, Hospitalization)
  Sender: FDA-Public Use
  Company Number: 2009002583

PATIENT
  Age: 73 Year
  Sex: Female
  Weight: 53.5 kg

DRUGS (3)
  1. ERLOTINIB HYDROCHLORIDE [Suspect]
     Indication: NEOPLASM MALIGNANT
     Dosage: 100 MG, QD, ORAL; 75 MG, QD, 0RAL
     Route: 048
     Dates: start: 20090227, end: 20090629
  2. ERLOTINIB HYDROCHLORIDE [Suspect]
     Indication: NEOPLASM MALIGNANT
     Dosage: 100 MG, QD, ORAL; 75 MG, QD, 0RAL
     Route: 048
     Dates: start: 20090706, end: 20090724
  3. GEMZAR [Suspect]
     Indication: NEOPLASM MALIGNANT
     Dosage: 1560, QW, INTRAVENOUS
     Route: 042
     Dates: start: 20090216, end: 20090720

REACTIONS (2)
  - BLOOD SODIUM DECREASED [None]
  - THROMBOCYTOPENIA [None]
